FAERS Safety Report 24130720 (Version 1)
Quarter: 2024Q3

REPORT INFORMATION
  Report Type: Spontaneous
  Country: JP (occurrence: JP)
  Receive Date: 20240724
  Receipt Date: 20240724
  Transmission Date: 20241017
  Serious: Yes (Hospitalization)
  Sender: TAKEDA
  Company Number: JP-TEVA-VS-3223004

PATIENT
  Age: 81 Year
  Sex: Female

DRUGS (1)
  1. LANSOPRAZOLE [Suspect]
     Active Substance: LANSOPRAZOLE
     Indication: Gastric polyps
     Dosage: DOSAGE IS UNKNOWN,OD 30
     Route: 048

REACTIONS (2)
  - Hospitalisation [Unknown]
  - Product prescribing issue [Unknown]
